FAERS Safety Report 5707871-7 (Version None)
Quarter: 2008Q2

REPORT INFORMATION
  Report Type: 
  Country: None (occurrence: None)
  Receive Date: 20080414
  Receipt Date: 20080313
  Transmission Date: 20081010
  Serious: Yes (Death, Hospitalization)
  Sender: FDA-Public Use
  Company Number: 2008S1004215

PATIENT
  Age: 72 Year
  Sex: Female

DRUGS (7)
  1. AMIODARONE HCL [Suspect]
     Indication: CARDIAC FIBRILLATION
     Dosage: 1350 MG; INTRAVENOUS DRIP; 1200 MG; INTRAVENOUS DRIP
     Route: 041
     Dates: start: 20060410, end: 20060413
  2. AMIODARONE HCL [Suspect]
     Indication: CARDIAC FIBRILLATION
     Dosage: 1350 MG; INTRAVENOUS DRIP; 1200 MG; INTRAVENOUS DRIP
     Route: 041
     Dates: start: 20060410, end: 20060413
  3. INSULIN (INSULIN) (CON.) [Concomitant]
  4. ASA (ACETYLSALICYLIC ACID) (CON.) [Concomitant]
  5. VERAPAMIL (VERAPAMIL) (CON.) [Concomitant]
  6. PENTOXIFYLLINE (PENTOXIFYLLINE) (CON.) [Concomitant]
  7. ACTRAPID /00646001/ (INSULIN HUMAN) (CON.) [Concomitant]

REACTIONS (4)
  - BLOOD PRESSURE DECREASED [None]
  - HEPATIC ENCEPHALOPATHY [None]
  - HEPATOTOXICITY [None]
  - RENAL FAILURE ACUTE [None]
